FAERS Safety Report 8477790-4 (Version None)
Quarter: 2012Q2

REPORT INFORMATION
  Report Type: 
  Country: None (occurrence: None)
  Receive Date: 20120622
  Receipt Date: 20120607
  Transmission Date: 20120825
  Serious: Yes (Hospitalization)
  Sender: FDA-Public Use
  Company Number: JPI-P-021201

PATIENT
  Age: 50 Year
  Sex: Female

DRUGS (1)
  1. XYREM [Suspect]
     Indication: NARCOLEPSY
     Dosage: 4.5 GM (2.25 GM, 2 IN 1 D), ORAL
     Route: 048
     Dates: start: 20111110

REACTIONS (15)
  - THROAT IRRITATION [None]
  - DRY THROAT [None]
  - SWELLING FACE [None]
  - SWOLLEN TONGUE [None]
  - TINNITUS [None]
  - ELECTROCARDIOGRAM ABNORMAL [None]
  - LARYNGEAL DISORDER [None]
  - HYPOAESTHESIA [None]
  - EYELID OEDEMA [None]
  - BLOOD PRESSURE INCREASED [None]
  - PARAESTHESIA [None]
  - DRY MOUTH [None]
  - AURICULAR SWELLING [None]
  - HEART RATE IRREGULAR [None]
  - TONSILLAR HYPERTROPHY [None]
